FAERS Safety Report 16377329 (Version 1)
Quarter: 2019Q3

REPORT INFORMATION
  Report Type: Spontaneous
  Country: US (occurrence: US)
  Receive Date: 20190530
  Receipt Date: 20190530
  Transmission Date: 20191004
  Serious: Yes (Hospitalization)
  Sender: FDA-Public Use
  Company Number: None

PATIENT
  Age: 54 Year
  Sex: Female

DRUGS (1)
  1. ENBREL [Suspect]
     Active Substance: ETANERCEPT
     Indication: RHEUMATOID ARTHRITIS
     Dosage: ?          OTHER FREQUENCY:EVERY 7 DAYS;?
     Route: 058

REACTIONS (7)
  - Arthropod bite [None]
  - Rheumatoid arthritis [None]
  - Joint swelling [None]
  - Fatigue [None]
  - Arthralgia [None]
  - Road traffic accident [None]
  - Concussion [None]

NARRATIVE: CASE EVENT DATE: 20190511
